FAERS Safety Report 25575198 (Version 2)
Quarter: 2025Q3

REPORT INFORMATION
  Report Type: Spontaneous
  Country: US (occurrence: US)
  Receive Date: 20250718
  Receipt Date: 20250807
  Transmission Date: 20251021
  Serious: Yes (Other)
  Sender: APOTEX
  Company Number: US-APOTEX-2025AP009675

PATIENT

DRUGS (2)
  1. BRIMONIDINE TARTRATE\TIMOLOL MALEATE [Suspect]
     Active Substance: BRIMONIDINE TARTRATE\TIMOLOL MALEATE
     Indication: Product used for unknown indication
     Route: 065
     Dates: start: 2024, end: 2025
  2. BRIMONIDINE TARTRATE\TIMOLOL MALEATE [Suspect]
     Active Substance: BRIMONIDINE TARTRATE\TIMOLOL MALEATE
     Route: 065
     Dates: start: 2025, end: 202506

REACTIONS (6)
  - Retinal detachment [Unknown]
  - Ocular hyperaemia [Recovered/Resolved]
  - Eyelid disorder [Unknown]
  - Eye irritation [Recovered/Resolved]
  - Eye pruritus [Not Recovered/Not Resolved]
  - Erythema of eyelid [Unknown]

NARRATIVE: CASE EVENT DATE: 20250101
